FAERS Safety Report 8524135-7 (Version None)
Quarter: 2012Q3

REPORT INFORMATION
  Report Type: 
  Country: None (occurrence: None)
  Receive Date: 20120720
  Receipt Date: 20120717
  Transmission Date: 20120928
  Serious: Yes (Disabling, Other)
  Sender: FDA-Public Use
  Company Number: GR-AMGEN-GRCSP2011048657

PATIENT
  Age: 65 Year
  Sex: Female

DRUGS (5)
  1. CALCIUM CARBONATE [Concomitant]
     Dosage: UNK
  2. PROLIA [Suspect]
     Indication: OSTEOPOROSIS
     Dosage: 60 MG, Q6MO
     Dates: start: 20120201
  3. T4 [Concomitant]
     Dosage: UNK
  4. PROLIA [Suspect]
     Dosage: 60 MG, Q6MO
  5. COAPROVEL 150/12.5 [Concomitant]
     Indication: HYPERTENSION
     Dosage: UNK

REACTIONS (2)
  - CATARACT [None]
  - LENTICULAR OPACITIES [None]
